FAERS Safety Report 5192202-4 (Version None)
Quarter: 2006Q4

REPORT INFORMATION
  Report Type: 
  Country: None (occurrence: None)
  Receive Date: 20061221
  Receipt Date: 20061221
  Transmission Date: 20070319
  Serious: Yes (Hospitalization)
  Sender: FDA-Public Use
  Company Number: None

PATIENT
  Age: 66 Year
  Sex: Female
  Weight: 94 kg

DRUGS (3)
  1. AVALIDE [Suspect]
     Dosage: 150/12.5 DAILY PO
     Route: 048
     Dates: start: 20060301
  2. TRIGLIDE [Suspect]
     Indication: HYPERLIPIDAEMIA
     Dosage: 160 MG DAILY PO
     Route: 048
     Dates: start: 20060401
  3. CRESTOR [Concomitant]

REACTIONS (7)
  - ANAEMIA [None]
  - ASTHENIA [None]
  - DIZZINESS [None]
  - LIVER FUNCTION TEST ABNORMAL [None]
  - RENAL FAILURE ACUTE [None]
  - SHIFT TO THE LEFT [None]
  - WHITE BLOOD CELL COUNT DECREASED [None]
